FAERS Safety Report 15401480 (Version 4)
Quarter: 2019Q2

REPORT INFORMATION
  Report Type: Report from Study
  Country: BR (occurrence: BR)
  Receive Date: 20180919
  Receipt Date: 20190627
  Transmission Date: 20190711
  Serious: Yes (Hospitalization, Other)
  Sender: FDA-Public Use
  Company Number: PHHY2018BR097401

PATIENT
  Age: 60 Year
  Sex: Female
  Weight: 71 kg

DRUGS (4)
  1. COSENTYX [Suspect]
     Active Substance: SECUKINUMAB
     Indication: PSORIATIC ARTHROPATHY
     Dosage: 300 MG, QW FOR 5 WEEKS
     Route: 058
     Dates: start: 201807
  2. COSENTYX [Suspect]
     Active Substance: SECUKINUMAB
     Dosage: UNK
     Route: 058
     Dates: start: 20180828
  3. COSENTYX [Suspect]
     Active Substance: SECUKINUMAB
     Dosage: 300 MG, QW FOR 5 WEEKS
     Route: 058
     Dates: start: 20180706
  4. COSENTYX [Suspect]
     Active Substance: SECUKINUMAB
     Dosage: 300 MG, QMO (EVERY 28 DAYS)
     Route: 058

REACTIONS (15)
  - Speech disorder [Recovered/Resolved]
  - Abdominal pain upper [Unknown]
  - General physical health deterioration [Unknown]
  - Pain [Not Recovered/Not Resolved]
  - Influenza [Unknown]
  - Hepatic steatosis [Recovering/Resolving]
  - Fall [Unknown]
  - Pleural effusion [Recovered/Resolved]
  - Dyspnoea [Recovering/Resolving]
  - Joint dislocation [Unknown]
  - Cardiac disorder [Recovered/Resolved]
  - Incorrect dose administered [Unknown]
  - Anaemia [Recovered/Resolved]
  - Upper limb fracture [Not Recovered/Not Resolved]
  - Memory impairment [Recovered/Resolved]

NARRATIVE: CASE EVENT DATE: 201808
